FAERS Safety Report 11158517 (Version 2)
Quarter: 2015Q2

REPORT INFORMATION
  Report Type: Spontaneous
  Country: NO (occurrence: NO)
  Receive Date: 20150603
  Receipt Date: 20150608
  Transmission Date: 20150821
  Serious: Yes (Disabling)
  Sender: FDA-Public Use
  Company Number: NO-PFIZER INC-2015184895

PATIENT
  Age: 51 Year
  Sex: Male
  Weight: 72 kg

DRUGS (10)
  1. METRONIDAZOL BAXTER [Suspect]
     Active Substance: METRONIDAZOLE
     Indication: GASTRIC INFECTION
     Dosage: 1 DF, 2X/DAY
     Dates: start: 20120103, end: 20120110
  2. NEXIUM [Concomitant]
     Active Substance: ESOMEPRAZOLE MAGNESIUM
     Dosage: 40 MG, DAILY
  3. VITAMIN D /00107901/ [Concomitant]
     Active Substance: ERGOCALCIFEROL
     Dosage: UNK
  4. METFORMIN [Concomitant]
     Active Substance: METFORMIN HYDROCHLORIDE
     Dosage: 500 MG, DAILY
  5. IRON [Concomitant]
     Active Substance: IRON
     Dosage: UNK
  6. SOMAC [Suspect]
     Active Substance: PANTOPRAZOLE SODIUM
     Indication: GASTRIC INFECTION
     Dosage: 1 DF, 2X/DAY
     Dates: start: 20120103, end: 20120110
  7. LIPITOR [Concomitant]
     Active Substance: ATORVASTATIN CALCIUM
     Dosage: 20 MG, DAILY
  8. METOPROLOL TARTRATE. [Concomitant]
     Active Substance: METOPROLOL TARTRATE
     Dosage: 25 MG, DAILY
  9. CLARITHROMYCIN. [Suspect]
     Active Substance: CLARITHROMYCIN
     Indication: GASTRIC INFECTION
     Dosage: 1000 MG, 2X/DAY
     Dates: start: 20120103, end: 20120110
  10. ALBYL-E [Concomitant]
     Active Substance: ASPIRIN\MAGNESIUM OXIDE
     Dosage: 75 MG, UNK

REACTIONS (4)
  - Weight decreased [Not Recovered/Not Resolved]
  - Listless [Not Recovered/Not Resolved]
  - Tinnitus [Not Recovered/Not Resolved]
  - Pyrexia [Not Recovered/Not Resolved]

NARRATIVE: CASE EVENT DATE: 20120104
